FAERS Safety Report 22277902 (Version 1)
Quarter: 2023Q2

REPORT INFORMATION
  Report Type: Spontaneous
  Country: CN (occurrence: CN)
  Receive Date: 20230503
  Receipt Date: 20230503
  Transmission Date: 20230722
  Serious: Yes (Other)
  Sender: FDA-Public Use
  Company Number: CN-JNJFOC-20230503059

PATIENT
  Age: 2 Year
  Sex: Female
  Weight: 15 kg

DRUGS (1)
  1. CHILDRENS MOTRIN [Suspect]
     Active Substance: IBUPROFEN
     Indication: Pyrexia
     Route: 048
     Dates: start: 20230411, end: 20230411

REACTIONS (3)
  - Confusional state [Recovered/Resolved]
  - Cyanosis [Recovered/Resolved]
  - Vomiting [Recovered/Resolved]

NARRATIVE: CASE EVENT DATE: 20230411
